FAERS Safety Report 7151928-3 (Version None)
Quarter: 2010Q4

REPORT INFORMATION
  Report Type: 
  Country: None (occurrence: None)
  Receive Date: 20101210
  Receipt Date: 20101202
  Transmission Date: 20110411
  Serious: Yes (Disabling)
  Sender: FDA-Public Use
  Company Number: AT-MERCK-1012AUT00001

PATIENT
  Age: 76 Year
  Sex: Female

DRUGS (12)
  1. ZOCOR [Suspect]
     Route: 048
     Dates: start: 20090101
  2. SIMVASTATIN [Suspect]
     Route: 048
  3. MOXONIDINE [Concomitant]
     Route: 048
  4. METOPROLOL [Concomitant]
     Route: 048
  5. ESCITALOPRAM OXALATE [Concomitant]
     Route: 048
  6. ENALAPRIL MALEATE [Concomitant]
     Route: 048
  7. AMLODIPINE BESYLATE [Concomitant]
     Route: 048
  8. LEVOTHYROXINE SODIUM [Concomitant]
     Route: 048
  9. ALLOPURINOL [Concomitant]
     Route: 048
  10. FUROSEMIDE [Concomitant]
     Route: 048
  11. ASPIRIN [Concomitant]
     Route: 048
  12. DOXAZOSIN MESYLATE [Concomitant]
     Indication: HYPERTENSION
     Route: 048
     Dates: end: 20100101

REACTIONS (1)
  - DEMENTIA [None]
